FAERS Safety Report 8203612-2 (Version None)
Quarter: 2012Q1

REPORT INFORMATION
  Report Type: 
  Country: None (occurrence: None)
  Receive Date: 20120313
  Receipt Date: 20120305
  Transmission Date: 20120608
  Serious: No
  Sender: FDA-Public Use
  Company Number: US-BIOGENIDEC-2012BI001404

PATIENT
  Age: 51 Year
  Sex: Female
  Weight: 115 kg

DRUGS (2)
  1. AVONEX [Suspect]
     Indication: MULTIPLE SCLEROSIS
     Route: 030
     Dates: start: 20110907
  2. ZOLOFT [Concomitant]
     Indication: DEPRESSION

REACTIONS (7)
  - BACK PAIN [None]
  - PERIPHERAL COLDNESS [None]
  - POLLAKIURIA [None]
  - WEIGHT DECREASED [None]
  - TREMOR [None]
  - FALL [None]
  - DECREASED APPETITE [None]
